FAERS Safety Report 9947308 (Version 1)
Quarter: 2014Q1

REPORT INFORMATION
  Report Type: Report from Study
  Country: US (occurrence: US)
  Receive Date: 20140303
  Receipt Date: 20140303
  Transmission Date: 20141002
  Serious: No
  Sender: FDA-Public Use
  Company Number: US-ABBVIE-13P-163-1060532-00

PATIENT
  Age: 49 Year
  Sex: Female

DRUGS (18)
  1. HUMIRA [Suspect]
     Indication: ANKYLOSING SPONDYLITIS
     Route: 058
     Dates: start: 201110
  2. METHOCARBAMOL [Concomitant]
     Indication: MUSCLE RELAXANT THERAPY
  3. MECLIZINE [Concomitant]
     Indication: DIZZINESS
     Dosage: 1 TAB TID PRN
  4. KLONOPIN [Concomitant]
     Indication: FIBROMYALGIA
  5. KLONOPIN [Concomitant]
     Indication: MUSCLE RELAXANT THERAPY
  6. NORCO [Concomitant]
     Indication: PAIN
     Dosage: 10/325
  7. IMITREX [Concomitant]
     Indication: MIGRAINE
  8. SYNTHROID [Concomitant]
     Indication: HYPOTHYROIDISM
     Dosage: 1 DIALY EXCEPT FOR WEDNESDAY
  9. TRIAM CO [Concomitant]
     Indication: PRODUCT USED FOR UNKNOWN INDICATION
     Dosage: 25 MG/375 MG 1 DAILY PRN
  10. CARTIA XT [Concomitant]
     Indication: HYPERTENSION
     Dosage: 240-24 MG DAILY
  11. CARTIA XT [Concomitant]
     Indication: SUPRAVENTRICULAR TACHYCARDIA
  12. ACYCLOVIR [Concomitant]
     Indication: GENITAL HERPES
  13. INDOMETACIN [Concomitant]
     Indication: ARTHRITIS
  14. NEXIUM [Concomitant]
     Indication: GASTROOESOPHAGEAL REFLUX DISEASE
  15. CYMBALTA [Concomitant]
     Indication: DEPRESSION
  16. CYMBALTA [Concomitant]
     Indication: FIBROMYALGIA
  17. METHOTREXATE [Concomitant]
     Indication: PRODUCT USED FOR UNKNOWN INDICATION
  18. PRAVASTATIN [Concomitant]
     Indication: BLOOD CHOLESTEROL INCREASED

REACTIONS (5)
  - Breast cyst [Not Recovered/Not Resolved]
  - Injection site pain [Unknown]
  - Injection site bruising [Not Recovered/Not Resolved]
  - Sight disability [Not Recovered/Not Resolved]
  - Pain [Not Recovered/Not Resolved]
